FAERS Safety Report 12372300 (Version 1)
Quarter: 2016Q2

REPORT INFORMATION
  Report Type: Spontaneous
  Country: GB (occurrence: GB)
  Receive Date: 20160516
  Receipt Date: 20160516
  Transmission Date: 20160815
  Serious: Yes (Other)
  Sender: FDA-Public Use
  Company Number: GB-WATSON-2016-09909

PATIENT
  Age: 80 Year
  Sex: Female

DRUGS (1)
  1. LOSARTAN (UNKNOWN) [Suspect]
     Active Substance: LOSARTAN
     Indication: PRODUCT USED FOR UNKNOWN INDICATION
     Dosage: 100 MG, UNK, FOR A LONG TIME
     Route: 065

REACTIONS (2)
  - Joint swelling [Unknown]
  - Musculoskeletal stiffness [Unknown]
